FAERS Safety Report 7930788-4 (Version None)
Quarter: 2011Q4

REPORT INFORMATION
  Report Type: 
  Country: None (occurrence: None)
  Receive Date: 20111121
  Receipt Date: 20111111
  Transmission Date: 20120403
  Serious: Yes (Hospitalization)
  Sender: FDA-Public Use
  Company Number: JP-GLAXOSMITHKLINE-B0712854A

PATIENT
  Sex: Male

DRUGS (11)
  1. UBRETID [Concomitant]
     Dosage: 5MG PER DAY
     Route: 048
  2. NORVASC [Concomitant]
     Dosage: 2.5MG PER DAY
     Route: 048
  3. CANDESARTAN CILEXETIL [Concomitant]
     Dosage: 8MG PER DAY
     Route: 048
  4. URIEF [Concomitant]
     Dosage: 8MG PER DAY
     Route: 048
  5. TRANEXAMIC ACID [Concomitant]
     Dosage: 750MG PER DAY
     Dates: start: 20110403
  6. FLOMOX [Concomitant]
     Dosage: 300MG PER DAY
     Dates: start: 20110404
  7. DUTASTERIDE [Suspect]
     Indication: PRODUCT USED FOR UNKNOWN INDICATION
     Dosage: .5MG PER DAY
     Route: 048
     Dates: start: 20110304
  8. ADONA [Concomitant]
     Dosage: 90MG PER DAY
     Dates: start: 20110403
  9. PARAMIDIN [Concomitant]
     Dosage: 300MG PER DAY
     Route: 048
     Dates: start: 20110406
  10. WARFARIN SODIUM [Concomitant]
     Dosage: .9MG PER DAY
     Route: 048
     Dates: start: 20110406
  11. AMARYL [Concomitant]
     Dosage: 1MG PER DAY
     Route: 048

REACTIONS (4)
  - HAEMATURIA [None]
  - BLADDER TAMPONADE [None]
  - URINARY RETENTION [None]
  - PROSTATIC HAEMORRHAGE [None]
